FAERS Safety Report 7574102-5 (Version None)
Quarter: 2011Q2

REPORT INFORMATION
  Report Type: 
  Country: None (occurrence: None)
  Receive Date: 20110621
  Receipt Date: 20110610
  Transmission Date: 20111010
  Serious: Yes (Disabling, Other)
  Sender: FDA-Public Use
  Company Number: GER/UKI/11/0018697

PATIENT
  Age: 79 Year
  Sex: Male

DRUGS (5)
  1. TAMSULOSIN HCL [Concomitant]
  2. SIMVASTATIN [Suspect]
     Indication: CEREBROVASCULAR ACCIDENT
     Dosage: 40 MG, ORAL
     Route: 048
     Dates: start: 20110223, end: 20110310
  3. RAMIPRIL [Concomitant]
  4. CLOPIDOGREL [Suspect]
     Indication: HYPERCHOLESTEROLAEMIA
     Dosage: 75 MG, ORAL
     Route: 048
     Dates: start: 20110223, end: 20110331
  5. ASPIRIN [Concomitant]

REACTIONS (3)
  - MYALGIA [None]
  - MUSCULAR WEAKNESS [None]
  - MOBILITY DECREASED [None]
